FAERS Safety Report 14479065 (Version 2)
Quarter: 2018Q1

REPORT INFORMATION
  Report Type: Report from Study
  Country: DE (occurrence: DE)
  Receive Date: 20180202
  Receipt Date: 20180326
  Transmission Date: 20180509
  Serious: No
  Sender: FDA-Public Use
  Company Number: DE-PURDUE-GBR-2018-0052713

PATIENT
  Age: 50 Year
  Sex: Male

DRUGS (3)
  1. SUBSTITOL [Suspect]
     Active Substance: MORPHINE SULFATE
     Indication: DRUG WITHDRAWAL MAINTENANCE THERAPY
     Dosage: 300-500 MG, DAILY
     Route: 048
     Dates: start: 20161115, end: 20161126
  2. MIRTAZAPINE. [Concomitant]
     Active Substance: MIRTAZAPINE
     Dosage: UNK
     Route: 065
     Dates: start: 2015
  3. ANTELEPSIN [Concomitant]
     Active Substance: CLONAZEPAM
     Dosage: UNK
     Route: 065
     Dates: start: 2012

REACTIONS (6)
  - Nausea [Recovered/Resolved]
  - Vomiting [Recovered/Resolved]
  - Pain [Recovered/Resolved]
  - Muscle spasms [Recovered/Resolved]
  - Headache [Recovered/Resolved]
  - Hot flush [Recovered/Resolved]

NARRATIVE: CASE EVENT DATE: 20161121
